FAERS Safety Report 19891511 (Version 3)
Quarter: 2021Q4

REPORT INFORMATION
  Report Type: Spontaneous
  Country: JP (occurrence: JP)
  Receive Date: 20210927
  Receipt Date: 20211004
  Transmission Date: 20220304
  Serious: Yes (Death, Other)
  Sender: FDA-Public Use
  Company Number: NVSJ2021JP014343

PATIENT
  Age: 98 Year

DRUGS (2)
  1. EXELON PATCH [Suspect]
     Active Substance: RIVASTIGMINE
     Indication: Dementia Alzheimer^s type
     Dosage: PATCH5(CM2)
     Route: 062
     Dates: start: 20170706
  2. EXELON PATCH [Suspect]
     Active Substance: RIVASTIGMINE
     Dosage: PATCH10(CM2)
     Route: 062
     Dates: end: 20170921

REACTIONS (4)
  - Death [Fatal]
  - Akinesia [Unknown]
  - Cerebral infarction [Unknown]
  - Somnolence [Unknown]

NARRATIVE: CASE EVENT DATE: 20180201
